FAERS Safety Report 20879595 (Version 2)
Quarter: 2023Q1

REPORT INFORMATION
  Report Type: Spontaneous
  Country: HR (occurrence: HR)
  Receive Date: 20220526
  Receipt Date: 20230125
  Transmission Date: 20230417
  Serious: Yes (Other)
  Sender: FDA-Public Use
  Company Number: None

PATIENT
  Age: 52 Year
  Sex: Male
  Weight: 98 kg

DRUGS (8)
  1. ZOLOFT [Suspect]
     Active Substance: SERTRALINE HYDROCHLORIDE
     Indication: Depression
     Dosage: 50 MG, 1X/DAY
     Route: 048
     Dates: start: 201902
  2. ENALAPRIL MALEATE\HYDROCHLOROTHIAZIDE [Concomitant]
     Active Substance: ENALAPRIL MALEATE\HYDROCHLOROTHIAZIDE
     Indication: Essential hypertension
     Dosage: ENALAPRIL MALEATE+25 MG HYDROCHLOROTHIAZIDE
     Route: 048
     Dates: start: 2016
  3. CORDIPIN XL [Concomitant]
     Indication: Essential hypertension
     Dosage: 40 MG, 1X/DAY
     Route: 048
     Dates: start: 2009
  4. CONTROLOC [Concomitant]
     Active Substance: PANTOPRAZOLE SODIUM
     Indication: Gastritis
     Dosage: 40 MG, 1X/DAY
     Route: 048
     Dates: start: 2021
  5. PROTECTA [Concomitant]
     Indication: Hyperlipidaemia
     Dosage: 20 MG, 1X/DAY
     Route: 048
     Dates: start: 2011
  6. TIANEPTINE SODIUM [Concomitant]
     Active Substance: TIANEPTINE SODIUM
     Indication: Depression
     Dosage: 12.5 MG, 1X/DAY
     Route: 048
     Dates: start: 2021
  7. NEBIVOLOL HYDROCHLORIDE [Concomitant]
     Active Substance: NEBIVOLOL HYDROCHLORIDE
     Indication: Essential hypertension
     Dosage: 1.25 MG, 1X/DAY
     Route: 048
     Dates: start: 2021
  8. METFORMIN HYDROCHLORIDE [Concomitant]
     Active Substance: METFORMIN HYDROCHLORIDE
     Indication: Type 2 diabetes mellitus
     Dosage: 1000 MG, 1X/DAY
     Route: 048
     Dates: start: 2016

REACTIONS (1)
  - Hypokalaemia [Not Recovered/Not Resolved]

NARRATIVE: CASE EVENT DATE: 20190201
